FAERS Safety Report 19990996 (Version 2)
Quarter: 2021Q4

REPORT INFORMATION
  Report Type: Report from Study
  Country: RS (occurrence: RS)
  Receive Date: 20211025
  Receipt Date: 20211129
  Transmission Date: 20220303
  Serious: Yes (Hospitalization)
  Sender: FDA-Public Use
  Company Number: RS-CELGENE-SBR-20211004743

PATIENT
  Age: 65 Year
  Sex: Female
  Weight: 86 kg

DRUGS (14)
  1. OZANIMOD [Suspect]
     Active Substance: OZANIMOD
     Indication: Colitis ulcerative
     Route: 048
     Dates: start: 20190822, end: 20211006
  2. MESALAMINE [Concomitant]
     Active Substance: MESALAMINE
     Indication: Colitis ulcerative
     Dosage: 1000 MILLIGRAM
     Route: 065
     Dates: start: 20160823
  3. BISOPROLOL [Concomitant]
     Active Substance: BISOPROLOL
     Indication: Hypertension
     Dosage: 10 MILLIGRAM
     Route: 065
     Dates: start: 1993
  4. ASPIRIN [Concomitant]
     Active Substance: ASPIRIN
     Indication: Cardiovascular event prophylaxis
     Dosage: 10 MILLIGRAM
     Route: 065
     Dates: start: 201610
  5. TRIMETAZIDINE [Concomitant]
     Active Substance: TRIMETAZIDINE
     Indication: Angina pectoris
     Dosage: 10 MILLIGRAM
     Route: 065
     Dates: start: 201610
  6. PANTOPRAZOLE SODIUM [Concomitant]
     Active Substance: PANTOPRAZOLE SODIUM
     Indication: Gastritis erosive
     Dosage: 20 MILLIGRAM
     Route: 048
     Dates: start: 20160823, end: 20210427
  7. PANTOPRAZOLE SODIUM [Concomitant]
     Active Substance: PANTOPRAZOLE SODIUM
     Dosage: 20 MILLIGRAM
     Route: 065
     Dates: start: 20210428
  8. HYDROTALCITE [Concomitant]
     Active Substance: HYDROTALCITE
     Indication: Gastritis erosive
     Dosage: 1500 MILLIGRAM
     Route: 048
     Dates: start: 20210428, end: 20210816
  9. GAVISCON [Concomitant]
     Active Substance: ALUMINUM HYDROXIDE\MAGNESIUM CARBONATE
     Indication: Gastritis erosive
     Dosage: 250+133,5+80 MG
     Route: 048
     Dates: start: 20210428, end: 20210816
  10. IRUMED [Concomitant]
     Indication: Hypertension
     Dosage: 20 MILLIGRAM
     Route: 048
     Dates: start: 2016
  11. AMLODIPINE [Concomitant]
     Active Substance: AMLODIPINE BESYLATE
     Indication: Hypertension
     Dosage: 5 MILLIGRAM
     Route: 048
     Dates: start: 2016
  12. ROSUVASTATIN CALCIUM [Concomitant]
     Active Substance: ROSUVASTATIN CALCIUM
     Indication: Hyperkeratosis lenticularis perstans
     Dosage: 10 MILLIGRAM
     Route: 048
     Dates: start: 2019
  13. Sol 0.95 NACL [Concomitant]
     Indication: Pneumonia
     Dosage: 250 MILLILITER
     Route: 048
     Dates: start: 202110, end: 2021
  14. Sol 0.95 NACL [Concomitant]
     Dosage: 500 MILLILITER
     Route: 048
     Dates: start: 20211015, end: 20211019

REACTIONS (1)
  - COVID-19 [Recovered/Resolved]

NARRATIVE: CASE EVENT DATE: 20211005
